FAERS Safety Report 9437291 (Version 1)
Quarter: 2013Q3

REPORT INFORMATION
  Report Type: Report from Study
  Country: US (occurrence: US)
  Receive Date: 20130802
  Receipt Date: 20130802
  Transmission Date: 20140515
  Serious: Yes (Death)
  Sender: FDA-Public Use
  Company Number: PHEH2013US016365

PATIENT
  Age: 71 Year
  Sex: Male

DRUGS (5)
  1. TASIGNA [Suspect]
     Indication: GASTROINTESTINAL NEOPLASM
     Dosage: 300 MG, BID
     Route: 048
     Dates: start: 20130626
  2. TASIGNA [Suspect]
     Indication: OFF LABEL USE
  3. NEXIUM [Concomitant]
  4. ZANTAC [Concomitant]
  5. OXYBUTYNIN [Concomitant]

REACTIONS (1)
  - Death [Fatal]
